FAERS Safety Report 15430285 (Version 1)
Quarter: 2018Q3

REPORT INFORMATION
  Report Type: Spontaneous
  Country: US (occurrence: US)
  Receive Date: 20180920
  Receipt Date: 20180920
  Transmission Date: 20181010
  Serious: Yes (Other)
  Sender: FDA-Public Use
  Company Number: None

PATIENT
  Age: 32 Year
  Sex: Male
  Weight: 69.75 kg

DRUGS (2)
  1. VITAMIN D [Concomitant]
     Active Substance: CHOLECALCIFEROL
  2. HYDROCLOROTHIAZIDE [Suspect]
     Active Substance: HYDROCHLOROTHIAZIDE
     Indication: HYPERTENSION
     Dosage: ?          QUANTITY:30 DF DOSAGE FORM;?
     Route: 048
     Dates: start: 20180725, end: 20180728

REACTIONS (9)
  - Abdominal pain [None]
  - Drug dispensing error [None]
  - Product quality issue [None]
  - Wrong drug administered [None]
  - Impaired work ability [None]
  - Multi-organ disorder [None]
  - Nausea [None]
  - Vision blurred [None]
  - Initial insomnia [None]

NARRATIVE: CASE EVENT DATE: 20180725
